FAERS Safety Report 6874567-8 (Version None)
Quarter: 2010Q2

REPORT INFORMATION
  Report Type: 
  Country: None (occurrence: None)
  Receive Date: 20100609
  Receipt Date: 20090624
  Transmission Date: 20101027
  Serious: No
  Sender: FDA-Public Use
  Company Number: 2009-00243

PATIENT
  Age: 74 Year
  Sex: Male

DRUGS (8)
  1. ZICAM ALLERGY RELIEF GEL SWABS [Suspect]
     Dosage: QD
     Dates: start: 20080101
  2. MIRTAZAPINE [Concomitant]
  3. LEXAPRO [Concomitant]
  4. PROPRANOLOL [Concomitant]
  5. CARDIA XT [Concomitant]
  6. ACIPHEX [Concomitant]
  7. DOXAZOSIN [Concomitant]
  8. KLOR-CON [Concomitant]

REACTIONS (1)
  - ANOSMIA [None]
